FAERS Safety Report 11190245 (Version 1)
Quarter: 2015Q2

REPORT INFORMATION
  Report Type: Spontaneous
  Country: US (occurrence: None)
  Receive Date: 20150612
  Receipt Date: 20150612
  Transmission Date: 20150821
  Serious: Yes (Other)
  Sender: FDA-Public Use
  Company Number: None

PATIENT
  Age: 70 Year
  Sex: Male
  Weight: 70.31 kg

DRUGS (8)
  1. TROSPIUM C1 20MG TAB 20MG SANCTURA [Suspect]
     Active Substance: TROSPIUM CHLORIDE
     Indication: URINARY RETENTION
     Route: 048
     Dates: start: 20150610, end: 20150610
  2. CARAFATE [Concomitant]
     Active Substance: SUCRALFATE
  3. MULTIVITAMIN [Suspect]
     Active Substance: VITAMINS
  4. SIMVASTATIN. [Concomitant]
     Active Substance: SIMVASTATIN
  5. ZERTEX (ALLERGY) [Concomitant]
  6. TAMSULOSIN [Concomitant]
     Active Substance: TAMSULOSIN
  7. VITAMIN B12 [Concomitant]
     Active Substance: CYANOCOBALAMIN
  8. VIT D. [Concomitant]

REACTIONS (3)
  - Muscle spasms [None]
  - Urinary retention [None]
  - Urinary tract disorder [None]

NARRATIVE: CASE EVENT DATE: 20150610
